FAERS Safety Report 9496410 (Version 1)
Quarter: 2013Q3

REPORT INFORMATION
  Report Type: Spontaneous
  Country: US (occurrence: None)
  Receive Date: 20130829
  Receipt Date: 20130829
  Transmission Date: 20140515
  Serious: Yes (Life-Threatening, Hospitalization)
  Sender: FDA-Public Use
  Company Number: 1713747-2013-99941

PATIENT
  Age: 69 Year
  Sex: Male
  Weight: 74.5 kg

DRUGS (1)
  1. SALINE SOLUTION [Suspect]

REACTIONS (1)
  - Unresponsive to stimuli [None]
